FAERS Safety Report 7150722-7 (Version None)
Quarter: 2010Q4

REPORT INFORMATION
  Report Type: 
  Country: None (occurrence: None)
  Receive Date: 20101210
  Receipt Date: 20101129
  Transmission Date: 20110411
  Serious: Yes (Other)
  Sender: FDA-Public Use
  Company Number: GB-ELI_LILLY_AND_COMPANY-GB201012000525

PATIENT
  Sex: Male

DRUGS (2)
  1. HUMALOG [Suspect]
     Dosage: UNK, 3/D
  2. LANTUS [Concomitant]
     Dosage: UNK, EACH EVENING

REACTIONS (1)
  - VISUAL ACUITY REDUCED [None]
